FAERS Safety Report 5070338-6 (Version None)
Quarter: 2006Q3

REPORT INFORMATION
  Report Type: 
  Country: None (occurrence: None)
  Receive Date: 20060731
  Receipt Date: 20060718
  Transmission Date: 20061208
  Serious: Yes (Other)
  Sender: FDA-Public Use
  Company Number: 2006076135

PATIENT
  Age: 54 Year
  Sex: Female

DRUGS (3)
  1. HALCION [Suspect]
     Indication: INSOMNIA
     Dosage: UNK (1 IN 1 D); ORAL
     Route: 048
     Dates: start: 20060320
  2. WPAX (LORAZEPAM) [Concomitant]
  3. LEXOTAN (BROMAZEPAM) [Concomitant]

REACTIONS (7)
  - ANGINA PECTORIS [None]
  - CARDIOVASCULAR DISORDER [None]
  - CHEST DISCOMFORT [None]
  - ELECTROCARDIOGRAM ST SEGMENT DEPRESSION [None]
  - EXTRASYSTOLES [None]
  - LIP DRY [None]
  - VENTRICULAR EXTRASYSTOLES [None]
